FAERS Safety Report 9347756 (Version 1)
Quarter: 2013Q2

REPORT INFORMATION
  Report Type: Spontaneous
  Country: US (occurrence: None)
  Receive Date: 20130612
  Receipt Date: 20130612
  Transmission Date: 20140414
  Serious: Yes (Death)
  Sender: FDA-Public Use
  Company Number: None

PATIENT
  Age: 65 Year
  Sex: Male
  Weight: 68 kg

DRUGS (1)
  1. SUCCINYLCHOLINE [Suspect]
     Indication: RESPIRATORY DISORDER
     Dates: start: 20130327, end: 20130327

REACTIONS (1)
  - Pyrexia [None]
